FAERS Safety Report 12545162 (Version 2)
Quarter: 2016Q3

REPORT INFORMATION
  Report Type: Report from Study
  Country: DE (occurrence: DE)
  Receive Date: 20160711
  Receipt Date: 20160720
  Transmission Date: 20161109
  Serious: Yes (Death, Hospitalization, Other)
  Sender: FDA-Public Use
  Company Number: DE-ASTELLAS-2016US026376

PATIENT
  Age: 71 Year
  Sex: Male

DRUGS (14)
  1. ERLOTINIB [Suspect]
     Active Substance: ERLOTINIB
     Indication: NEOPLASM MALIGNANT
     Route: 048
     Dates: start: 20120705, end: 20120801
  2. GEMCITABINE [Suspect]
     Active Substance: GEMCITABINE\GEMCITABINE HYDROCHLORIDE
     Indication: NEOPLASM MALIGNANT
     Route: 042
     Dates: start: 20120705, end: 20120712
  3. RALTEGRAVIR. [Concomitant]
     Active Substance: RALTEGRAVIR
     Indication: HIV INFECTION
     Route: 048
     Dates: start: 20120705, end: 20120923
  4. LAMIVUDINE. [Concomitant]
     Active Substance: LAMIVUDINE
     Indication: HIV INFECTION
     Route: 048
     Dates: start: 20120705, end: 20120923
  5. FLUVASTATIN [Concomitant]
     Active Substance: FLUVASTATIN SODIUM
     Indication: PRODUCT USED FOR UNKNOWN INDICATION
     Route: 048
     Dates: start: 20120705, end: 20120923
  6. RAMIPRIL. [Concomitant]
     Active Substance: RAMIPRIL
     Indication: HYPERTENSION
     Route: 048
     Dates: start: 20120705, end: 20120923
  7. BUPRENORPHIN ACINO [Concomitant]
     Indication: PAIN
     Dosage: 0.4 MG, AS NEEDED
     Route: 060
     Dates: start: 20120705, end: 20120923
  8. TENOFOVIR [Concomitant]
     Active Substance: TENOFOVIR
     Indication: HIV INFECTION
     Route: 048
     Dates: start: 20120705, end: 20120923
  9. SMOFKABIVEN [Concomitant]
     Active Substance: UNSPECIFIED INGREDIENT
     Indication: PROPHYLAXIS
     Dosage: 1600 KCAL, UNKNOWN FREQ.
     Route: 042
     Dates: start: 20120816, end: 20120923
  10. MACROGOL [Concomitant]
     Active Substance: POLYETHYLENE GLYCOLS
     Indication: CONSTIPATION
     Route: 048
     Dates: start: 20120705, end: 20120923
  11. FENTANYL. [Concomitant]
     Active Substance: FENTANYL
     Indication: PAIN
     Dosage: 125 MICRO M/H, THRICE DAILY
     Route: 048
     Dates: start: 20120705, end: 20120923
  12. AMITRIPTYLINE [Concomitant]
     Active Substance: AMITRIPTYLINE
     Indication: CONSTIPATION
     Route: 048
     Dates: start: 20120705, end: 20120923
  13. METOPROLOL. [Concomitant]
     Active Substance: METOPROLOL
     Indication: HYPERTENSION
     Dosage: 47.5 MG, DAY
     Route: 048
     Dates: start: 20120705, end: 20120923
  14. PANTOPRAZOL [Concomitant]
     Active Substance: PANTOPRAZOLE SODIUM
     Indication: PROPHYLAXIS
     Route: 048
     Dates: start: 20120705, end: 20120923

REACTIONS (7)
  - Malignant neoplasm progression [Fatal]
  - Anaemia [Recovered/Resolved]
  - General physical health deterioration [Unknown]
  - White blood cell count abnormal [Recovered/Resolved]
  - Rash [Recovered/Resolved]
  - Nausea [Recovered/Resolved]
  - Platelet count abnormal [Recovered/Resolved]

NARRATIVE: CASE EVENT DATE: 20120705
